FAERS Safety Report 22621019 (Version 1)
Quarter: 2023Q2

REPORT INFORMATION
  Report Type: Spontaneous
  Country: FR (occurrence: FR)
  Receive Date: 20230620
  Receipt Date: 20230620
  Transmission Date: 20230722
  Serious: Yes (Hospitalization, Other)
  Sender: FDA-Public Use
  Company Number: FR-FreseniusKabi-FK202309068

PATIENT
  Age: 80 Year
  Sex: Female

DRUGS (1)
  1. PACLITAXEL [Suspect]
     Active Substance: PACLITAXEL
     Indication: Breast cancer

REACTIONS (4)
  - Lactic acidosis [Recovered/Resolved]
  - Gastrointestinal mucosal necrosis [Recovered/Resolved]
  - Gastric ulcer [Recovered/Resolved]
  - Gastritis bacterial [Recovered/Resolved]
